FAERS Safety Report 8305613-2 (Version None)
Quarter: 2012Q2

REPORT INFORMATION
  Report Type: 
  Country: None (occurrence: None)
  Receive Date: 20120418
  Receipt Date: 20120410
  Transmission Date: 20120825
  Serious: Yes (Disabling)
  Sender: FDA-Public Use
  Company Number: 2012MA004812

PATIENT
  Age: 51 Year
  Sex: Female

DRUGS (3)
  1. ESTRADIOL [Concomitant]
  2. HORMONE REPLACEMENT THERAPY [Concomitant]
  3. GABAPENTIN [Suspect]
     Dosage: 900 MG
     Dates: start: 20120301

REACTIONS (2)
  - TREMOR [None]
  - MALAISE [None]
